FAERS Safety Report 10459054 (Version 1)
Quarter: 2014Q3

REPORT INFORMATION
  Report Type: Spontaneous
  Country: None (occurrence: None)
  Receive Date: 20140916
  Receipt Date: 20140916
  Transmission Date: 20150326
  Serious: Yes (Hospitalization, Other)
  Sender: FDA-Public Use
  Company Number: None

PATIENT
  Age: 37 Year
  Sex: Male

DRUGS (1)
  1. TOPIRAMATE. [Suspect]
     Active Substance: TOPIRAMATE
     Indication: MIGRAINE
     Dosage: 1 PILL
     Route: 048

REACTIONS (4)
  - Ciliary body disorder [None]
  - Swelling [None]
  - Angle closure glaucoma [None]
  - Myopia [None]

NARRATIVE: CASE EVENT DATE: 20140903
